FAERS Safety Report 10600306 (Version 1)
Quarter: 2014Q4

REPORT INFORMATION
  Report Type: Spontaneous
  Country: GB (occurrence: GB)
  Receive Date: 20141123
  Receipt Date: 20141123
  Transmission Date: 20150529
  Serious: Yes (Other)
  Sender: FDA-Public Use
  Company Number: GB-MYLANLABS-2014M1011672

PATIENT

DRUGS (6)
  1. BUPIVACAINE [Concomitant]
     Active Substance: BUPIVACAINE
     Indication: EPIDURAL ANAESTHESIA
     Dosage: 250MG
     Route: 065
  2. DIAMORPHINE [Concomitant]
     Active Substance: DIACETYLMORPHINE
     Indication: EPIDURAL ANAESTHESIA
     Dosage: 3MG
     Route: 065
  3. SYNTOCINON [Concomitant]
     Active Substance: OXYTOCIN
     Route: 065
  4. MILRINONE [Suspect]
     Active Substance: MILRINONE
     Dosage: 0.1-0.5 MCG/KG/MIN
     Route: 065
  5. NOREPINEPHRINE [Suspect]
     Active Substance: NOREPINEPHRINE\NOREPINEPHRINE BITARTRATE
     Dosage: 0.05-0.07 MCG/KG/MIN
     Route: 065
  6. SYNTOCINON [Concomitant]
     Active Substance: OXYTOCIN
     Dosage: 5IU BOLUS OVER 5 MINUTES FOLLOWED BY A STANDARD INFUSION
     Route: 065

REACTIONS (2)
  - Ventricular hypokinesia [Recovered/Resolved]
  - Exposure during pregnancy [Recovered/Resolved]
